FAERS Safety Report 4520618-5 (Version None)
Quarter: 2004Q4

REPORT INFORMATION
  Report Type: 
  Country: None (occurrence: None)
  Receive Date: 20041203
  Receipt Date: 20041123
  Transmission Date: 20050328
  Serious: Yes (Life-Threatening)
  Sender: FDA-Public Use
  Company Number: 2004-BP-12184BP

PATIENT
  Age: 68 Year
  Sex: Male
  Weight: 97.3 kg

DRUGS (19)
  1. MICARDIS [Suspect]
     Indication: DIABETIC NEPHROPATHY
     Dosage: 40 MG/80 MG , PO
     Route: 048
  2. POTASSIUM CHLORIDE [Concomitant]
  3. ATORVASTATIN (ATORVASTATIN) [Concomitant]
  4. CLONIDINE [Concomitant]
  5. NITROGLYCERIN [Concomitant]
  6. RANITIDINE [Concomitant]
  7. COLESTIPOL (COLESTIPOL) [Concomitant]
  8. METOPROLOL TARTRATE [Concomitant]
  9. LASIX [Concomitant]
  10. AMLODIPINE [Concomitant]
  11. NPH INSULIN [Concomitant]
  12. REGULAR INSULIN [Concomitant]
  13. SODIUM CHLORIDE NASAL SPRAY [Concomitant]
  14. ASPIRIN [Concomitant]
  15. VITAMIN E [Concomitant]
  16. VITAMIN C (ASCORBIC ACID) [Concomitant]
  17. GARLIC [Concomitant]
  18. CENTRUM SILVER (CENTRUM SILVER) [Concomitant]
  19. FISH OIL [Concomitant]

REACTIONS (7)
  - BLOOD ALKALINE PHOSPHATASE INCREASED [None]
  - BLOOD CREATININE INCREASED [None]
  - BLOOD GLUCOSE INCREASED [None]
  - CHEST PAIN [None]
  - COUGH [None]
  - EJECTION FRACTION DECREASED [None]
  - HYPERTENSION [None]
